FAERS Safety Report 6468635-2 (Version None)
Quarter: 2009Q4

REPORT INFORMATION
  Report Type: 
  Country: None (occurrence: None)
  Receive Date: 20091203
  Receipt Date: 20091127
  Transmission Date: 20100525
  Serious: Yes (Other)
  Sender: FDA-Public Use
  Company Number: JP-WYE-H11633709

PATIENT
  Sex: Female

DRUGS (1)
  1. ZOSYN [Suspect]
     Route: 041
     Dates: start: 20091013, end: 20091013

REACTIONS (3)
  - ALTERED STATE OF CONSCIOUSNESS [None]
  - ASTHENIA [None]
  - UNRESPONSIVE TO STIMULI [None]
